FAERS Safety Report 24152480 (Version 1)
Quarter: 2024Q3

REPORT INFORMATION
  Report Type: Spontaneous
  Country: JP (occurrence: JP)
  Receive Date: 20240730
  Receipt Date: 20240730
  Transmission Date: 20241017
  Serious: Yes (Hospitalization)
  Sender: ARGENX BVBA
  Company Number: JP-ARGENX-2022-ARGX-JP002841

PATIENT

DRUGS (3)
  1. EFGARTIGIMOD ALFA [Suspect]
     Active Substance: EFGARTIGIMOD ALFA
     Indication: Myasthenia gravis
     Dosage: UNK
     Route: 042
  2. EFGARTIGIMOD ALFA [Suspect]
     Active Substance: EFGARTIGIMOD ALFA
     Dosage: UNK
     Route: 042
     Dates: start: 20220916
  3. EFGARTIGIMOD ALFA [Suspect]
     Active Substance: EFGARTIGIMOD ALFA
     Dosage: UNK
     Route: 042
     Dates: start: 20221125

REACTIONS (10)
  - Myasthenia gravis [Not Recovered/Not Resolved]
  - Pyrexia [Unknown]
  - Oral mucosal blistering [Unknown]
  - Malaise [Unknown]
  - Listless [Unknown]
  - Influenza [Unknown]
  - Fatigue [Unknown]
  - Drug ineffective [Unknown]
  - Drug ineffective [Unknown]
  - Drug ineffective [Unknown]

NARRATIVE: CASE EVENT DATE: 20220617
